FAERS Safety Report 5872407-7 (Version None)
Quarter: 2008Q3

REPORT INFORMATION
  Report Type: 
  Country: None (occurrence: None)
  Receive Date: 20080905
  Receipt Date: 20080902
  Transmission Date: 20090109
  Serious: Yes (Disabling)
  Sender: FDA-Public Use
  Company Number: GB-ASTRAZENECA-2005AP06081

PATIENT
  Age: 21534 Day
  Sex: Female

DRUGS (5)
  1. ARIMIDEX [Suspect]
     Indication: BREAST CANCER IN SITU
     Route: 048
     Dates: start: 20050315, end: 20051101
  2. ARIMIDEX [Suspect]
     Route: 048
     Dates: start: 20060218
  3. RISEDRONATE SODIUM [Concomitant]
  4. CALCICHEW [Concomitant]
  5. MELOXICAM [Concomitant]

REACTIONS (1)
  - GINGIVAL HYPERPLASIA [None]
